FAERS Safety Report 7111008-X (Version None)
Quarter: 2010Q4

REPORT INFORMATION
  Report Type: 
  Country: None (occurrence: None)
  Receive Date: 20101118
  Receipt Date: 20101111
  Transmission Date: 20110411
  Serious: Yes (Hospitalization)
  Sender: FDA-Public Use
  Company Number: JP-MERCK-1009USA00053

PATIENT
  Age: 78 Year
  Sex: Male
  Weight: 62 kg

DRUGS (20)
  1. PEPCID RPD [Suspect]
     Route: 048
     Dates: end: 20100801
  2. VESICARE [Concomitant]
     Route: 065
     Dates: end: 20100801
  3. PRONON [Concomitant]
     Route: 065
  4. ARTIST [Concomitant]
     Route: 065
  5. PROMAC [Concomitant]
     Route: 065
  6. COMELIAN [Concomitant]
     Route: 065
  7. SIGMART [Concomitant]
     Route: 065
  8. OLMETEC [Concomitant]
     Route: 048
  9. ALMARL [Concomitant]
     Route: 065
  10. AMLODIPINE BESYLATE [Concomitant]
     Route: 065
  11. ADALAT CC [Concomitant]
     Route: 065
  12. PARACLODIN [Concomitant]
     Route: 048
  13. DEPAS [Concomitant]
     Route: 065
  14. URIEF [Concomitant]
     Route: 048
  15. EBRANTIL [Concomitant]
     Route: 048
  16. FERROUS CITRATE [Concomitant]
     Route: 048
  17. XALATAN [Concomitant]
     Route: 065
  18. HYALEIN [Concomitant]
     Route: 065
  19. ZYLORIC [Suspect]
     Route: 048
  20. ADALAT [Concomitant]
     Route: 065

REACTIONS (3)
  - ALVEOLITIS ALLERGIC [None]
  - EOSINOPHILIC PNEUMONIA ACUTE [None]
  - INTERSTITIAL LUNG DISEASE [None]
